FAERS Safety Report 20648191 (Version 2)
Quarter: 2022Q4

REPORT INFORMATION
  Report Type: Report from Study
  Country: IT (occurrence: IT)
  Receive Date: 20220329
  Receipt Date: 20221003
  Transmission Date: 20230112
  Serious: Yes (Other)
  Sender: FDA-Public Use
  Company Number: IT-UCBSA-2022010403

PATIENT
  Sex: Female

DRUGS (4)
  1. LACOSAMIDE [Suspect]
     Active Substance: LACOSAMIDE
     Indication: Product used for unknown indication
     Dosage: 50 MILLIGRAM, 2X/DAY (BID)
     Dates: start: 202107
  2. LACOSAMIDE [Suspect]
     Active Substance: LACOSAMIDE
     Dosage: 50MG IN THE MORNING AND 100MG IN THE EVENING
     Dates: start: 20220121
  3. LACOSAMIDE [Suspect]
     Active Substance: LACOSAMIDE
     Dosage: 3 TABLETS OF 50MG PER DAY
  4. VALIUM [Concomitant]
     Active Substance: DIAZEPAM
     Indication: Product used for unknown indication

REACTIONS (8)
  - Hypoxic-ischaemic encephalopathy [Unknown]
  - Seizure [Unknown]
  - Headache [Unknown]
  - Stress [Unknown]
  - Malaise [Unknown]
  - Somnolence [Unknown]
  - Dysarthria [Unknown]
  - Off label use [Unknown]

NARRATIVE: CASE EVENT DATE: 20220121
